FAERS Safety Report 16340239 (Version 2)
Quarter: 2019Q2

REPORT INFORMATION
  Report Type: Report from Study
  Country: ZA (occurrence: ZA)
  Receive Date: 20190522
  Receipt Date: 20190608
  Transmission Date: 20190711
  Serious: Yes (Hospitalization)
  Sender: FDA-Public Use
  Company Number: ZA-AMGEN-ZAFCT2019077822

PATIENT
  Age: 62 Year
  Sex: Male
  Weight: 69.72 kg

DRUGS (9)
  1. LOPINAVIR/RITONAVIR [Concomitant]
     Active Substance: LOPINAVIR\RITONAVIR
     Dosage: 2 UNK
     Route: 048
     Dates: start: 201801
  2. ZIDOVUDINE. [Concomitant]
     Active Substance: ZIDOVUDINE
     Dosage: 300 MILLIGRAM
     Route: 048
     Dates: start: 201801
  3. METFORMIN [Concomitant]
     Active Substance: METFORMIN HYDROCHLORIDE
     Dosage: 850 MILLIGRAM
     Route: 048
     Dates: start: 2014
  4. GLIMEPIRIDE. [Concomitant]
     Active Substance: GLIMEPIRIDE
     Dosage: 2 MILLIGRAM
     Route: 048
     Dates: start: 2014
  5. HYDROCHLOROTHIAZIDE. [Concomitant]
     Active Substance: HYDROCHLOROTHIAZIDE
     Dosage: 12.5 MILLIGRAM
     Route: 048
     Dates: start: 2014
  6. PREFILLED AUTOINJECTOR/PEN [Suspect]
     Active Substance: DEVICE
     Indication: LIPID METABOLISM DISORDER
     Dosage: UNK
     Route: 058
     Dates: start: 20180907
  7. LAMIVUDINE. [Concomitant]
     Active Substance: LAMIVUDINE
     Dosage: 150 MILLIGRAM
     Route: 048
     Dates: start: 201801
  8. EVOLOCUMAB [Suspect]
     Active Substance: EVOLOCUMAB
     Indication: LIPID METABOLISM DISORDER
     Dosage: UNK
     Route: 058
     Dates: start: 20180907
  9. AMLODIPINE [Concomitant]
     Active Substance: AMLODIPINE BESYLATE
     Dosage: 10 MILLIGRAM
     Route: 048
     Dates: start: 2014

REACTIONS (1)
  - Depression [Recovered/Resolved]

NARRATIVE: CASE EVENT DATE: 201901
